FAERS Safety Report 5008133-6 (Version None)
Quarter: 2006Q2

REPORT INFORMATION
  Report Type: 
  Country: None (occurrence: None)
  Receive Date: 20060517
  Receipt Date: 20060504
  Transmission Date: 20061013
  Serious: Yes (Hospitalization)
  Sender: FDA-Public Use
  Company Number: 2006059681

PATIENT
  Age: 89 Year
  Sex: Female

DRUGS (3)
  1. ZITHROMAX [Suspect]
     Indication: INFLUENZA
     Dosage: 500 MG (500 MG, 1 IN 1 D), ORAL
     Route: 048
     Dates: start: 20060201, end: 20060501
  2. TIRODRIL (THIAMAZOLE) [Concomitant]
  3. XALATAN [Concomitant]

REACTIONS (4)
  - BRONCHOSPASM [None]
  - PNEUMONIA [None]
  - STRESS [None]
  - TREMOR [None]
